FAERS Safety Report 11165517 (Version 1)
Quarter: 2015Q2

REPORT INFORMATION
  Report Type: Spontaneous
  Country: NL (occurrence: NL)
  Receive Date: 20150604
  Receipt Date: 20150604
  Transmission Date: 20150821
  Serious: Yes (Congenital Anomaly)
  Sender: FDA-Public Use
  Company Number: PHHY2015NL063959

PATIENT
  Weight: 3 kg

DRUGS (2)
  1. PREDNISON [Suspect]
     Active Substance: PREDNISONE
     Indication: PRODUCT USED FOR UNKNOWN INDICATION
     Dosage: (MOTHER DOSE: 10 MG QD)
     Route: 064
  2. FERROFUMARAAT [Concomitant]
     Indication: PRODUCT USED FOR UNKNOWN INDICATION
     Dosage: (MOTHER DOSE 200 MG BID)
     Route: 064

REACTIONS (1)
  - Genitalia external ambiguous [Unknown]

NARRATIVE: CASE EVENT DATE: 20150513
